FAERS Safety Report 16729179 (Version 1)
Quarter: 2019Q3

REPORT INFORMATION
  Report Type: Spontaneous
  Country: US (occurrence: US)
  Receive Date: 20190704
  Receipt Date: 20190704
  Transmission Date: 20191005
  Serious: Yes (Life-Threatening, Hospitalization)
  Sender: FDA-Public Use
  Company Number: None

PATIENT
  Age: 74 Year
  Sex: Male
  Weight: 56 kg

DRUGS (3)
  1. DABIGATRAN [Suspect]
     Active Substance: DABIGATRAN
     Indication: ATRIAL FIBRILLATION
     Route: 048
     Dates: start: 20190329, end: 20190418
  2. ASPIRIN. [Suspect]
     Active Substance: ASPIRIN
     Indication: SURGERY
     Route: 048
     Dates: start: 20190315, end: 20190422
  3. ASPIRIN. [Suspect]
     Active Substance: ASPIRIN
     Indication: CARDIOVASCULAR DISORDER
     Route: 048
     Dates: start: 20190315, end: 20190422

REACTIONS (7)
  - Gastrointestinal haemorrhage [None]
  - Diarrhoea haemorrhagic [None]
  - Gastric haemorrhage [None]
  - Acute myocardial infarction [None]
  - Haemorrhoidal haemorrhage [None]
  - Haematuria [None]
  - Anaemia [None]

NARRATIVE: CASE EVENT DATE: 20190418
